FAERS Safety Report 7136045-0 (Version None)
Quarter: 2010Q4

REPORT INFORMATION
  Report Type: 
  Country: None (occurrence: None)
  Receive Date: 20101204
  Receipt Date: 20101011
  Transmission Date: 20110411
  Serious: Yes (Hospitalization)
  Sender: FDA-Public Use
  Company Number: US-BAYER-201026823NA

PATIENT

DRUGS (2)
  1. YASMIN [Suspect]
     Indication: ORAL CONTRACEPTION
     Route: 048
     Dates: start: 20050301, end: 20060801
  2. YAZ [Suspect]
     Route: 048
     Dates: start: 20050301, end: 20060801

REACTIONS (3)
  - ABDOMINAL ADHESIONS [None]
  - BILIARY COLIC [None]
  - CHOLECYSTITIS ACUTE [None]
